FAERS Safety Report 9128884 (Version 2)
Quarter: 2013Q3

REPORT INFORMATION
  Report Type: Spontaneous
  Country: US (occurrence: US)
  Receive Date: 20130228
  Receipt Date: 20130827
  Transmission Date: 20140515
  Serious: Yes (Other)
  Sender: FDA-Public Use
  Company Number: US-FRI-1000042857

PATIENT
  Sex: Male
  Weight: 78 kg

DRUGS (4)
  1. VIIBRYD [Suspect]
     Dosage: 40 MG
  2. LISINOPRIL [Concomitant]
     Dosage: 20 MG
  3. DOXAZOSIN [Concomitant]
     Dosage: 4 MG
  4. TAMSULOSIN [Concomitant]
     Dosage: 0.4 MG

REACTIONS (7)
  - Loss of consciousness [Unknown]
  - Amnesia [Unknown]
  - Confusional state [Unknown]
  - Disorientation [Unknown]
  - Ventricular extrasystoles [Unknown]
  - Dizziness [Unknown]
  - Nasal congestion [Unknown]
